FAERS Safety Report 12145509 (Version 1)
Quarter: 2016Q1

REPORT INFORMATION
  Report Type: Spontaneous
  Country: US (occurrence: None)
  Receive Date: 20160303
  Receipt Date: 20160303
  Transmission Date: 20160526
  Serious: Yes (Hospitalization)
  Sender: FDA-Public Use
  Company Number: None

PATIENT
  Age: 73 Year
  Sex: Male
  Weight: 75.8 kg

DRUGS (15)
  1. BENDAMUSTINE HYDROCHLORIDE [Suspect]
     Active Substance: BENDAMUSTINE HYDROCHLORIDE
     Dates: start: 20151116, end: 20160219
  2. CALCIUM + VITAMIN D [Concomitant]
     Active Substance: CALCIUM\VITAMIN D
  3. COQ10 [Concomitant]
     Active Substance: UBIDECARENONE
  4. NEBIVOLOL. [Concomitant]
     Active Substance: NEBIVOLOL
  5. BABY ASPIRIN [Concomitant]
     Active Substance: ASPIRIN
  6. IRON SUPPLEMENT [Concomitant]
     Active Substance: IRON
  7. ONDANSETRON [Concomitant]
     Active Substance: ONDANSETRON
  8. FISH OIL [Concomitant]
     Active Substance: FISH OIL
  9. SYNTHROID [Concomitant]
     Active Substance: LEVOTHYROXINE SODIUM
  10. VITAMIN C [Concomitant]
     Active Substance: ASCORBIC ACID
  11. AMLODIPINE [Concomitant]
     Active Substance: AMLODIPINE BESYLATE
  12. MULTIVITAMIN [Concomitant]
     Active Substance: VITAMINS
  13. PRILOSEC [Concomitant]
     Active Substance: OMEPRAZOLE MAGNESIUM
  14. RITUXIMAB (MOAB C2B8 ANTI CD20, CHIMERIC) [Suspect]
     Active Substance: RITUXIMAB
     Dates: end: 20160218
  15. RED YEAST RICE [Concomitant]
     Active Substance: DIETARY SUPPLEMENT

REACTIONS (4)
  - Pancytopenia [None]
  - Troponin increased [None]
  - Pyrexia [None]
  - Systemic inflammatory response syndrome [None]

NARRATIVE: CASE EVENT DATE: 20160227
